FAERS Safety Report 10479919 (Version 1)
Quarter: 2014Q3

REPORT INFORMATION
  Report Type: Spontaneous
  Country: US (occurrence: None)
  Receive Date: 20140926
  Receipt Date: 20140926
  Transmission Date: 20150326
  Serious: Yes (Hospitalization)
  Sender: FDA-Public Use
  Company Number: None

PATIENT
  Age: 37 Year
  Sex: Female
  Weight: 139 kg

DRUGS (1)
  1. TIROSINT [Suspect]
     Active Substance: LEVOTHYROXINE SODIUM
     Indication: HYPOTHYROIDISM
     Dosage: 1 PILL, ONCE DAILY, TAKEN BY MOUTH
     Route: 048
     Dates: start: 20140409, end: 20140411

REACTIONS (11)
  - Dizziness [None]
  - Palpitations [None]
  - Vision blurred [None]
  - Hypertension [None]
  - Disorientation [None]
  - Thirst [None]
  - Chest pain [None]
  - Swelling face [None]
  - Hyperhidrosis [None]
  - Dry eye [None]
  - Crying [None]

NARRATIVE: CASE EVENT DATE: 20140411
